FAERS Safety Report 12715171 (Version 1)
Quarter: 2016Q3

REPORT INFORMATION
  Report Type: Spontaneous
  Country: FR (occurrence: FR)
  Receive Date: 20160905
  Receipt Date: 20160905
  Transmission Date: 20161109
  Serious: Yes (Other)
  Sender: FDA-Public Use
  Company Number: FR-ASTRAZENECA-2016SE93918

PATIENT
  Sex: Female

DRUGS (2)
  1. LANTUS [Concomitant]
     Active Substance: INSULIN GLARGINE
  2. BYDUREON [Suspect]
     Active Substance: EXENATIDE
     Route: 065

REACTIONS (3)
  - Glycosylated haemoglobin increased [Unknown]
  - Drug ineffective [Not Recovered/Not Resolved]
  - Off label use [Recovered/Resolved]
